FAERS Safety Report 9367694 (Version 1)
Quarter: 2013Q2

REPORT INFORMATION
  Report Type: Report from Study
  Country: US (occurrence: US)
  Receive Date: 20130625
  Receipt Date: 20130625
  Transmission Date: 20140414
  Serious: Yes (Hospitalization, Other)
  Sender: FDA-Public Use
  Company Number: US-CELGENEUS-163-21880-13062883

PATIENT
  Age: 60 Year
  Sex: Male
  Weight: 73.09 kg

DRUGS (30)
  1. REVLIMID [Suspect]
     Indication: PLASMA CELL MYELOMA RECURRENT
     Dosage: 25 MILLIGRAM
     Route: 048
     Dates: start: 20110728, end: 20130522
  2. REVLIMID [Suspect]
     Dosage: 25 MILLIGRAM
     Route: 048
     Dates: start: 2013, end: 20130606
  3. DEXAMETHASONE [Suspect]
     Indication: PLASMA CELL MYELOMA RECURRENT
     Dosage: 40 MILLIGRAM
     Route: 065
     Dates: start: 20110728, end: 20130523
  4. DEXAMETHASONE [Suspect]
     Dosage: 40 MILLIGRAM
     Route: 065
     Dates: start: 2013, end: 20130606
  5. ACYCLOVIR [Concomitant]
     Indication: ANTIVIRAL PROPHYLAXIS
     Dosage: 1600 MILLIGRAM
     Route: 048
     Dates: start: 20100603, end: 20130609
  6. ACYCLOVIR [Concomitant]
     Dosage: 1000 MILLIGRAM
     Route: 041
     Dates: start: 20130611, end: 20130614
  7. ACYCLOVIR [Concomitant]
     Dosage: 1600 MILLIGRAM
     Route: 041
     Dates: start: 20130614
  8. AMBIEN [Concomitant]
     Indication: INSOMNIA
     Route: 048
     Dates: start: 20130502
  9. ASPIRIN [Concomitant]
     Indication: ANTICOAGULANT THERAPY
     Dosage: 325 MILLIGRAM
     Route: 048
     Dates: start: 20110627, end: 20130609
  10. ASPIRIN [Concomitant]
     Indication: ANTIPLATELET THERAPY
  11. CALCIUM + VITAMIN D [Concomitant]
     Indication: SUPPLEMENTATION THERAPY
     Dosage: 1200 MILLIGRAM
     Route: 048
     Dates: start: 20100919, end: 20130610
  12. CALCIUM CARBONATE [Concomitant]
     Indication: SUPPLEMENTATION THERAPY
     Dosage: 1000 MILLIGRAM
     Route: 048
     Dates: start: 20130614
  13. CHOLECALCIFEROL [Concomitant]
     Indication: SUPPLEMENTATION THERAPY
     Dosage: 1000 UNITS
     Route: 048
     Dates: start: 20130613
  14. FENTANYL [Concomitant]
     Indication: SEDATION
     Route: 041
     Dates: start: 20130611, end: 20130611
  15. FENTANYL [Concomitant]
     Route: 041
     Dates: start: 20130613, end: 20130613
  16. FERROUS SULFATE [Concomitant]
     Indication: IRON DEFICIENCY
     Dosage: 975 MILLIGRAM
     Route: 048
     Dates: start: 20120405
  17. GLUTAMINE [Concomitant]
     Indication: NEUROPATHY PERIPHERAL
     Dosage: 4 GRAM
     Route: 048
     Dates: start: 20100922
  18. OMEPRAZOLE [Concomitant]
     Indication: DRUG THERAPY
     Dosage: 20 MILLIGRAM
     Route: 048
     Dates: start: 20110727, end: 20130609
  19. OMEPRAZOLE [Concomitant]
     Dosage: 80 MILLIGRAM
     Route: 048
     Dates: start: 20130613
  20. PANTOPRAZOLE [Concomitant]
     Indication: DRUG THERAPY
     Dosage: 160 MILLIGRAM
     Route: 041
     Dates: start: 20130611, end: 20130614
  21. POTASSIUM CHLORIDE [Concomitant]
     Indication: HYPOKALAEMIA
     Route: 048
     Dates: start: 20130613, end: 20130613
  22. PSYLLIUM [Concomitant]
     Indication: SUPPLEMENTATION THERAPY
     Dosage: 1 PACKET
     Route: 048
     Dates: start: 20130614
  23. SENNA-S [Concomitant]
     Indication: CONSTIPATION
     Dosage: 2 TABLET
     Route: 048
     Dates: start: 20100914, end: 20130610
  24. VERSED [Concomitant]
     Indication: SEDATION
     Route: 041
     Dates: start: 20130611, end: 20130611
  25. VERSED [Concomitant]
     Route: 041
     Dates: start: 20130613, end: 20130613
  26. VICODIN [Concomitant]
     Indication: BACK PAIN
     Dosage: 1-2 TABS
     Route: 048
     Dates: start: 20100909, end: 20130611
  27. VICODIN [Concomitant]
     Dosage: 1-2 TABS
     Route: 048
     Dates: start: 20130615
  28. VITAMIN B COMPLEX [Concomitant]
     Indication: SUPPLEMENTATION THERAPY
     Dosage: 2 CAPSULE
     Route: 048
     Dates: start: 20101209
  29. VITAMIN D [Concomitant]
     Indication: SUPPLEMENTATION THERAPY
     Dosage: 2000 IU (INTERNATIONAL UNIT)
     Route: 048
     Dates: start: 20101014
  30. ZOMETA [Concomitant]
     Indication: DRUG THERAPY
     Dosage: 4 MILLIGRAM
     Route: 041
     Dates: start: 20110920

REACTIONS (1)
  - Gastrointestinal stromal tumour [Not Recovered/Not Resolved]
